FAERS Safety Report 17527896 (Version 1)
Quarter: 2020Q1

REPORT INFORMATION
  Report Type: Spontaneous
  Country: US (occurrence: US)
  Receive Date: 20200311
  Receipt Date: 20200311
  Transmission Date: 20200409
  Serious: No
  Sender: FDA-Public Use
  Company Number: US-009507513-2003USA004163

PATIENT
  Age: 64 Year
  Sex: Female

DRUGS (4)
  1. DOXORUBICIN HYDROCHLORIDE. [Concomitant]
     Active Substance: DOXORUBICIN HYDROCHLORIDE
  2. KEYTRUDA [Suspect]
     Active Substance: PEMBROLIZUMAB
     Indication: METASTASES TO BONE
  3. KEYTRUDA [Suspect]
     Active Substance: PEMBROLIZUMAB
     Indication: ENDOMETRIAL CANCER METASTATIC
     Dosage: UNK
  4. CARBOPLATIN (+) PACLITAXEL [Concomitant]
     Active Substance: CARBOPLATIN\PACLITAXEL

REACTIONS (1)
  - Product use in unapproved indication [Unknown]
